FAERS Safety Report 24335797 (Version 2)
Quarter: 2024Q4

REPORT INFORMATION
  Report Type: Report from Study
  Country: US (occurrence: US)
  Receive Date: 20240919
  Receipt Date: 20241021
  Transmission Date: 20250114
  Serious: Yes (Hospitalization, Other)
  Sender: ABBVIE
  Company Number: US-ABBVIE-5926917

PATIENT
  Sex: Male

DRUGS (2)
  1. VENCLEXTA [Suspect]
     Active Substance: VENETOCLAX
     Indication: Mantle cell lymphoma
     Route: 048
     Dates: start: 20240819
  2. BRUKINSA [Concomitant]
     Active Substance: ZANUBRUTINIB
     Indication: Product used for unknown indication
     Dates: start: 20240628

REACTIONS (4)
  - Intestinal obstruction [Unknown]
  - Urticaria [Unknown]
  - Discomfort [Unknown]
  - Pancreatitis [Unknown]

NARRATIVE: CASE EVENT DATE: 20240101
